FAERS Safety Report 7440665-3 (Version None)
Quarter: 2011Q2

REPORT INFORMATION
  Report Type: 
  Country: None (occurrence: None)
  Receive Date: 20110427
  Receipt Date: 20110425
  Transmission Date: 20111010
  Serious: Yes (Hospitalization)
  Sender: FDA-Public Use
  Company Number: JP-ABBOTT-11P-087-0721564-00

PATIENT
  Sex: Male

DRUGS (2)
  1. HUMIRA [Suspect]
     Indication: CROHN'S DISEASE
     Route: 058
     Dates: start: 20110228, end: 20110228
  2. HUMIRA [Suspect]
     Dates: start: 20110307, end: 20110424

REACTIONS (2)
  - GASTROINTESTINAL INFLAMMATION [None]
  - ILEUS [None]
